FAERS Safety Report 10079803 (Version 1)
Quarter: 2014Q2

REPORT INFORMATION
  Report Type: Spontaneous
  Country: US (occurrence: US)
  Receive Date: 20140415
  Receipt Date: 20140415
  Transmission Date: 20141212
  Serious: Yes (Other)
  Sender: FDA-Public Use
  Company Number: US-ASTRAZENECA-2014SE24565

PATIENT
  Age: 54 Year
  Sex: Male

DRUGS (7)
  1. LISINOPRIL [Suspect]
     Indication: HYPERTENSION
     Route: 048
  2. LISINOPRIL [Interacting]
     Indication: PROTEINURIA
     Route: 048
  3. LINAGLIPTIN [Interacting]
     Indication: HYPOGLYCAEMIA
  4. AMLODIPINE [Concomitant]
     Indication: HYPERTENSION
  5. HYDRALAZINE [Concomitant]
     Indication: HYPERTENSION
  6. CLONIDINE [Concomitant]
     Indication: HYPERTENSION
  7. GLIMEPIRIDE [Concomitant]

REACTIONS (2)
  - Drug interaction [Unknown]
  - Renal failure acute [Recovered/Resolved]
